FAERS Safety Report 18565654 (Version 1)
Quarter: 2020Q4

REPORT INFORMATION
  Report Type: Spontaneous
  Country: DE (occurrence: DE)
  Receive Date: 20201201
  Receipt Date: 20201201
  Transmission Date: 20210114
  Serious: Yes (Death)
  Sender: FDA-Public Use
  Company Number: NVSC2020DE320202

PATIENT
  Sex: Female

DRUGS (1)
  1. LUTETIUM (177LU) OXODOTREOTIDE [Suspect]
     Active Substance: LUTETIUM OXODOTREOTIDE LU-177
     Indication: NEUROENDOCRINE TUMOUR
     Dosage: MEDIAN CUMULATIVE ADMINISTERED ACTIVITY WAS 8 GBQ
     Route: 065

REACTIONS (1)
  - Myelodysplastic syndrome [Fatal]
